FAERS Safety Report 22302269 (Version 1)
Quarter: 2023Q2

REPORT INFORMATION
  Report Type: Report from Study
  Country: US (occurrence: US)
  Receive Date: 20230510
  Receipt Date: 20230510
  Transmission Date: 20230721
  Serious: Yes (Hospitalization)
  Sender: FDA-Public Use
  Company Number: US-ABBVIE-4758777

PATIENT
  Age: 46 Year
  Sex: Female

DRUGS (2)
  1. SKYRIZI [Suspect]
     Active Substance: RISANKIZUMAB-RZAA
     Indication: Psoriatic arthropathy
     Dosage: THE EVENT OF DIARRHEA, GASTROENTERITIS VIRAL AND TACHYCARDIA CESSATION DATE WAS 2023.
     Route: 058
     Dates: start: 20230206
  2. SKYRIZI [Suspect]
     Active Substance: RISANKIZUMAB-RZAA
     Indication: Psoriasis

REACTIONS (4)
  - Diarrhoea [Recovered/Resolved]
  - Gastroenteritis viral [Recovered/Resolved]
  - Tachycardia [Recovered/Resolved]
  - Anaemia [Unknown]

NARRATIVE: CASE EVENT DATE: 20230301
